FAERS Safety Report 4670207-7 (Version None)
Quarter: 2005Q2

REPORT INFORMATION
  Report Type: 
  Country: None (occurrence: None)
  Receive Date: 20050520
  Receipt Date: 20050511
  Transmission Date: 20051028
  Serious: Yes (Hospitalization, Other)
  Sender: FDA-Public Use
  Company Number: 32

PATIENT
  Age: 16 Year
  Sex: Female

DRUGS (1)
  1. MINOCYCLINE HCL [Suspect]
     Indication: ACNE
     Dosage: 100 MG BID

REACTIONS (4)
  - BENIGN INTRACRANIAL HYPERTENSION [None]
  - HEADACHE [None]
  - MUSCULOSKELETAL STIFFNESS [None]
  - VISION BLURRED [None]
